FAERS Safety Report 14695969 (Version 2)
Quarter: 2018Q3

REPORT INFORMATION
  Report Type: Report from Study
  Country: None (occurrence: JP)
  Receive Date: 20180329
  Receipt Date: 20180904
  Transmission Date: 20181010
  Serious: Yes (Death)
  Sender: FDA-Public Use
  Company Number: JP-BAUSCH-BL-2018-009070

PATIENT
  Age: 67 Year
  Sex: Female

DRUGS (11)
  1. CHOREAZINE TABLETS 12.5 MG [Suspect]
     Active Substance: TETRABENAZINE
     Route: 048
     Dates: start: 20161212, end: 20170516
  2. MUCOSOLVAN [Concomitant]
     Active Substance: AMBROXOL HYDROCHLORIDE
     Indication: BRAIN CONTUSION
     Route: 048
     Dates: start: 20161115
  3. MUCOSOLVAN [Concomitant]
     Active Substance: AMBROXOL HYDROCHLORIDE
     Indication: HEAD INJURY
  4. CHOREAZINE TABLETS 12.5 MG [Suspect]
     Active Substance: TETRABENAZINE
     Route: 048
     Dates: start: 20161128, end: 20161211
  5. CHOREAZINE TABLETS 12.5 MG [Suspect]
     Active Substance: TETRABENAZINE
     Route: 048
     Dates: start: 20170517, end: 20170726
  6. CHOREAZINE TABLETS 12.5 MG [Suspect]
     Active Substance: TETRABENAZINE
     Indication: HUNTINGTON^S DISEASE
     Route: 048
     Dates: start: 20170914
  7. CHOREAZINE TABLETS 12.5 MG [Suspect]
     Active Substance: TETRABENAZINE
     Route: 048
     Dates: start: 20161115, end: 20161127
  8. RIVOTRIL [Concomitant]
     Active Substance: CLONAZEPAM
     Indication: HEAD INJURY
  9. RIVOTRIL [Concomitant]
     Active Substance: CLONAZEPAM
     Indication: BRAIN CONTUSION
     Route: 048
     Dates: start: 20161115
  10. PROHEPARUM [Concomitant]
     Active Substance: CHOLINE BITARTRATE\CYSTEINE\INOSITOL\MAMMAL LIVER
     Indication: HEPATITIS C
     Route: 048
     Dates: start: 20161115
  11. URSO [Concomitant]
     Active Substance: URSODIOL
     Indication: HEPATITIS C
     Route: 048
     Dates: start: 20161115

REACTIONS (4)
  - Dizziness [Recovering/Resolving]
  - Fall [Recovering/Resolving]
  - Fall [Fatal]
  - Brain contusion [Fatal]

NARRATIVE: CASE EVENT DATE: 20170517
